FAERS Safety Report 8984204 (Version 3)
Quarter: 2013Q1

REPORT INFORMATION
  Report Type: Spontaneous
  Country: JP (occurrence: None)
  Receive Date: 20121212
  Receipt Date: 20130211
  Transmission Date: 20140127
  Serious: Yes (Other)
  Sender: FDA-Public Use
  Company Number: JP-1195584

PATIENT
  Age: 62 Year
  Sex: Female
  Weight: 55 kg

DRUGS (4)
  1. TRAVATAN Z [Suspect]
     Indication: OCULAR HYPERTENSION
     Route: 047
     Dates: start: 20121119, end: 20121124
  2. MIKELAN [Concomitant]
  3. AZOPT [Concomitant]
  4. ALPHAGAN [Concomitant]

REACTIONS (2)
  - Arrhythmia [None]
  - Bradycardia [None]
